FAERS Safety Report 6210282-1 (Version None)
Quarter: 2009Q2

REPORT INFORMATION
  Report Type: 
  Country: None (occurrence: None)
  Receive Date: 20090601
  Receipt Date: 20090520
  Transmission Date: 20091009
  Serious: Yes (Other)
  Sender: FDA-Public Use
  Company Number: GB-PFIZER INC-2009216200

PATIENT
  Age: 23 Year

DRUGS (2)
  1. CLINDAMYCIN PHOSPHATE [Suspect]
     Indication: ACNE
     Dosage: UNK
     Route: 061
     Dates: start: 20090201
  2. BENZOYL PEROXIDE [Suspect]
     Indication: ACNE
     Dosage: UNK
     Route: 061
     Dates: start: 20090201

REACTIONS (5)
  - ERYTHEMA [None]
  - INFLAMMATION [None]
  - PRURITUS [None]
  - RASH [None]
  - SKIN IRRITATION [None]
